FAERS Safety Report 25379976 (Version 1)
Quarter: 2025Q2

REPORT INFORMATION
  Report Type: Spontaneous
  Country: US (occurrence: None)
  Receive Date: 20250530
  Receipt Date: 20250530
  Transmission Date: 20250716
  Serious: Yes (Hospitalization)
  Sender: FDA-CTU
  Company Number: None

PATIENT
  Age: 17 Year
  Sex: Female

DRUGS (10)
  1. PULMOZYME [Suspect]
     Active Substance: DORNASE ALFA
     Indication: Cystic fibrosis
     Dosage: OTHER FREQUENCY : MAXOF18CAPSPERDAY;?
     Route: 055
     Dates: start: 20240103
  2. ZENPEP [Suspect]
     Active Substance: PANCRELIPASE AMYLASE\PANCRELIPASE LIPASE\PANCRELIPASE PROTEASE
     Indication: Cystic fibrosis
     Dosage: FREQUENCY : DAILY;?
     Route: 048
  3. ALBUTEROL SULFATE [Concomitant]
     Active Substance: ALBUTEROL SULFATE
  4. FLUTICASONE NS [Concomitant]
  5. MVW D3000 SOFTGELS [Concomitant]
  6. OMEPRAZOLE 20MG TABS [Concomitant]
  7. PHYTONADIONE 5MG TABS [Concomitant]
  8. POLYETH GLYCOL 3350 POWDER [Concomitant]
  9. SODIUM CHLORIDE 7% NEB SOLN [Concomitant]
  10. VITAMIN D3 1000 UNIT TABS [Concomitant]

REACTIONS (3)
  - Secretion discharge [None]
  - Haemoptysis [None]
  - Activities of daily living decreased [None]

NARRATIVE: CASE EVENT DATE: 20250501
